FAERS Safety Report 24872368 (Version 1)
Quarter: 2025Q1

REPORT INFORMATION
  Report Type: Spontaneous
  Country: DK (occurrence: DK)
  Receive Date: 20250122
  Receipt Date: 20250122
  Transmission Date: 20250408
  Serious: Yes (Life-Threatening, Other)
  Sender: ALKEM
  Company Number: DK-ALKEM LABORATORIES LIMITED-DK-ALKEM-2024-21559

PATIENT
  Age: 67 Year
  Sex: Male

DRUGS (1)
  1. MORPHINE SULFATE [Suspect]
     Active Substance: MORPHINE SULFATE
     Indication: Spinal anaesthesia
     Route: 065

REACTIONS (2)
  - Respiratory depression [Unknown]
  - Somnolence [Unknown]
